FAERS Safety Report 7297457-8 (Version None)
Quarter: 2011Q1

REPORT INFORMATION
  Report Type: 
  Country: None (occurrence: None)
  Receive Date: 20110207
  Receipt Date: 20110131
  Transmission Date: 20110831
  Serious: Yes (Hospitalization)
  Sender: FDA-Public Use
  Company Number: WAES 1101USA00837

PATIENT
  Age: 67 Year
  Sex: Female

DRUGS (3)
  1. DEXAMETHASONE [Suspect]
     Indication: MULTIPLE MYELOMA
     Dosage: 20 MG/DAILY, PO
     Route: 048
     Dates: start: 20100103
  2. BORTEZOMIB [Suspect]
     Indication: MULTIPLE MYELOMA
     Dosage: 1.02MG/DAILY; IV
     Route: 042
     Dates: start: 20100103
  3. CAP VORINOSTAT [Suspect]
     Indication: MULTIPLE MYELOMA
     Dosage: 200 MG/DAILY; PO
     Route: 048
     Dates: start: 20100103

REACTIONS (2)
  - PNEUMONIA [None]
  - DIARRHOEA [None]
